FAERS Safety Report 12507274 (Version 3)
Quarter: 2018Q2

REPORT INFORMATION
  Report Type: Spontaneous
  Country: US (occurrence: US)
  Receive Date: 20160629
  Receipt Date: 20180420
  Transmission Date: 20180711
  Serious: Yes (Death, Hospitalization)
  Sender: FDA-Public Use
  Company Number: US-PFIZER INC-2016309335

PATIENT
  Age: 89 Year
  Sex: Female
  Weight: 47.62 kg

DRUGS (2)
  1. NORVASC [Concomitant]
     Active Substance: AMLODIPINE BESYLATE
     Indication: HYPERTENSION
     Dosage: 5 MG, 1X/DAY
  2. SUTENT [Suspect]
     Active Substance: SUNITINIB MALATE
     Indication: NEUROENDOCRINE TUMOUR
     Dosage: 12.5 MG, 1X/DAY
     Dates: start: 201512, end: 20160624

REACTIONS (4)
  - Renal failure [Fatal]
  - Lower limb fracture [Unknown]
  - Neuroendocrine tumour [Fatal]
  - Disease progression [Fatal]
